FAERS Safety Report 21321710 (Version 1)
Quarter: 2022Q3

REPORT INFORMATION
  Report Type: Report from Study
  Country: US (occurrence: US)
  Receive Date: 20220912
  Receipt Date: 20220912
  Transmission Date: 20221026
  Serious: No
  Sender: FDA-Public Use
  Company Number: US-NOVARTISTESTPH-NVSC2022US205076

PATIENT
  Age: 0 Year
  Sex: Female

DRUGS (1)
  1. ZOLGENSMA [Suspect]
     Active Substance: ONASEMNOGENE ABEPARVOVEC-XIOI
     Indication: Spinal muscular atrophy
     Dosage: 1.1 KG, ONCE/SINGLE (1.1X10^14 VG/KG)
     Route: 042
     Dates: start: 20220902, end: 20220902

REACTIONS (2)
  - Infantile spitting up [Unknown]
  - Irritability [Unknown]

NARRATIVE: CASE EVENT DATE: 20220908
